FAERS Safety Report 8333665 (Version 3)
Quarter: 2012Q4

REPORT INFORMATION
  Report Type: 
  Country: US (occurrence: US)
  Receive Date: 20120112
  Receipt Date: 20121005
  Transmission Date: 20130627
  Serious: Yes (Hospitalization, Other)
  Sender: FDA-Public Use
  Company Number: PHEH2011US011882

PATIENT
  Sex: Female

DRUGS (21)
  1. VIVELLE DOT [Suspect]
     Dosage: 0.075 mg, twice weekly
     Route: 062
     Dates: start: 2001
  2. VIVELLE DOT [Suspect]
     Dosage: 0.075 UKN, UNK
  3. NEXIUM [Concomitant]
     Dosage: UNK UKN, UNK
  4. VERAPAMIL [Concomitant]
     Dosage: 2 DF, QD
  5. FUROSEMIDE [Concomitant]
     Dosage: UNK UKN, UNK
  6. ZETIA [Concomitant]
     Dosage: 10 mg, QD
  7. SIMVASTATIN [Concomitant]
     Dosage: 20 mg, QD
  8. SINGULAIR [Concomitant]
     Dosage: UNK UKN, UNK
  9. POTASSIUM [Concomitant]
     Dosage: UNK UKN, UNK
  10. FERROUS SULFATE [Concomitant]
     Dosage: 1 DF, QD
  11. XOPENEX HFA [Concomitant]
     Indication: CHRONIC OBSTRUCTIVE PULMONARY DISEASE
     Dosage: UNK UKN, UNK
  12. XOPENEX HFA [Concomitant]
     Dosage: 45mcg/200
  13. BUSPIRONE HYDROCHLORIDE [Concomitant]
     Dosage: UNK UKN, UNK
  14. CHLORPROMAZINE [Concomitant]
     Dosage: 100 mg 1 x per day - she cuts the tablet in half to take it twice a day
  15. LEXAPRO [Concomitant]
     Dosage: 0.5 to 1 pill per day
  16. IPRATROPIUM BROMIDE [Concomitant]
     Dosage: UNK UKN, UNK
  17. SPIRIVA [Concomitant]
     Dosage: UNK UKN, UNK
  18. ALPRAZOLAM [Concomitant]
     Dosage: UNK UKN, UNK
  19. HYDROCODIN [Concomitant]
     Dosage: UNK UKN, UNK
  20. METHOCARBAMOL [Concomitant]
     Dosage: UNK UKN, UNK
  21. LASIX [Concomitant]
     Dosage: 40 mg, TID

REACTIONS (6)
  - Bronchitis chronic [Unknown]
  - Pneumonia [Unknown]
  - Ear infection [Unknown]
  - Amnesia [Unknown]
  - Arthropathy [Unknown]
  - Product adhesion issue [Unknown]
